FAERS Safety Report 7081802-2 (Version None)
Quarter: 2010Q4

REPORT INFORMATION
  Report Type: 
  Country: None (occurrence: None)
  Receive Date: 20101103
  Receipt Date: 20101021
  Transmission Date: 20110411
  Serious: Yes (Hospitalization)
  Sender: FDA-Public Use
  Company Number: US-ELI_LILLY_AND_COMPANY-US201010005593

PATIENT
  Sex: Female

DRUGS (11)
  1. CYMBALTA [Suspect]
     Indication: DEPRESSION
     Dosage: 120 MG, DAILY (1/D)
  2. CYMBALTA [Suspect]
     Dosage: 60 MG, 2/D
  3. CYMBALTA [Suspect]
     Dosage: 60 MG, QOD
     Dates: end: 20101015
  4. PREMARIN [Concomitant]
     Dosage: UNK, UNK
  5. LASIX /USA/ [Concomitant]
  6. NORVASC [Concomitant]
  7. BIDIL [Concomitant]
  8. CLONIDINE [Concomitant]
  9. AMLODIPINE [Concomitant]
  10. ATIVAN [Concomitant]
  11. POTASSIUM CHLORIDE [Concomitant]

REACTIONS (5)
  - BURNING SENSATION [None]
  - HYPERHIDROSIS [None]
  - INSOMNIA [None]
  - NASOPHARYNGITIS [None]
  - PNEUMONIA [None]
